FAERS Safety Report 18261698 (Version 1)
Quarter: 2020Q3

REPORT INFORMATION
  Report Type: Spontaneous
  Country: US (occurrence: US)
  Receive Date: 20200912
  Receipt Date: 20200912
  Transmission Date: 20201103
  Serious: Yes (Death)
  Sender: FDA-Public Use
  Company Number: None

PATIENT
  Age: 70 Year
  Sex: Male
  Weight: 60.75 kg

DRUGS (1)
  1. AMIODARONE [Suspect]
     Active Substance: AMIODARONE
     Indication: ARRHYTHMIA
     Dates: start: 20200725, end: 20200827

REACTIONS (4)
  - Dyspnoea [None]
  - Pulmonary function test decreased [None]
  - Pneumonia [None]
  - Traumatic lung injury [None]

NARRATIVE: CASE EVENT DATE: 20200725
